FAERS Safety Report 5612954-6 (Version None)
Quarter: 2008Q1

REPORT INFORMATION
  Report Type: 
  Country: None (occurrence: None)
  Receive Date: 20080204
  Receipt Date: 20080123
  Transmission Date: 20080703
  Serious: Yes (Hospitalization)
  Sender: FDA-Public Use
  Company Number: GB-PFIZER INC-2008007642

PATIENT
  Age: 68 Year
  Sex: Female
  Weight: 65 kg

DRUGS (5)
  1. LINEZOLID [Suspect]
     Indication: ENTEROCOCCAL INFECTION
     Dates: start: 20070901, end: 20071201
  2. ALLOPURINOL [Concomitant]
     Route: 048
  3. ATORVASTATIN [Concomitant]
     Route: 048
  4. FUROSEMIDE [Concomitant]
     Route: 048
  5. RAMIPRIL [Concomitant]
     Route: 048

REACTIONS (4)
  - CHEILITIS [None]
  - DYSGEUSIA [None]
  - FATIGUE [None]
  - HAEMOGLOBIN DECREASED [None]
